FAERS Safety Report 4585603-6 (Version None)
Quarter: 2005Q1

REPORT INFORMATION
  Report Type: 
  Country: None (occurrence: None)
  Receive Date: 20050214
  Receipt Date: 20050202
  Transmission Date: 20050727
  Serious: Yes (Other)
  Sender: FDA-Public Use
  Company Number: 2005025238

PATIENT

DRUGS (1)
  1. DISOPYRAMIDE PHOSPHATE [Suspect]
     Indication: ILL-DEFINED DISORDER

REACTIONS (2)
  - CARDIAC VENTRICULAR DISORDER [None]
  - CARDIOMYOPATHY [None]
